FAERS Safety Report 6218942-3 (Version None)
Quarter: 2009Q2

REPORT INFORMATION
  Report Type: 
  Country: None (occurrence: None)
  Receive Date: 20090608
  Receipt Date: 20090529
  Transmission Date: 20091009
  Serious: Yes (Other)
  Sender: FDA-Public Use
  Company Number: US-AMGEN-QUU348312

PATIENT
  Sex: Female
  Weight: 77.2 kg

DRUGS (9)
  1. ENBREL [Suspect]
     Indication: RHEUMATOID ARTHRITIS
     Route: 058
     Dates: start: 20030501, end: 20090520
  2. AMITRIPTLINE HYDROCHLORIDE TAB [Concomitant]
     Route: 048
  3. WELLBUTRIN [Concomitant]
     Route: 048
  4. MULTI-VITAMINS [Concomitant]
  5. FOLIC ACID [Concomitant]
     Route: 048
  6. LEUCOVORIN CALCIUM [Concomitant]
     Route: 048
  7. METHOTREXATE [Concomitant]
     Route: 048
  8. THYROID TAB [Concomitant]
     Route: 048
  9. NAPROXEN [Concomitant]

REACTIONS (2)
  - HAIR FOLLICLE TUMOUR BENIGN [None]
  - SKIN CANCER [None]
